FAERS Safety Report 14277229 (Version 1)
Quarter: 2017Q4

REPORT INFORMATION
  Report Type: Spontaneous
  Country: US (occurrence: US)
  Receive Date: 20171212
  Receipt Date: 20171212
  Transmission Date: 20180321
  Serious: No
  Sender: FDA-Public Use
  Company Number: US-009507513-1712USA002855

PATIENT
  Sex: Female

DRUGS (1)
  1. NEXPLANON [Suspect]
     Active Substance: ETONOGESTREL
     Indication: COMPLICATION ASSOCIATED WITH DEVICE
     Dosage: EVERY THREE YEARS
     Route: 059
     Dates: start: 20151006

REACTIONS (1)
  - Vaginal haemorrhage [Unknown]
